FAERS Safety Report 19880040 (Version 4)
Quarter: 2022Q1

REPORT INFORMATION
  Report Type: Report from Study
  Country: ES (occurrence: ES)
  Receive Date: 20210924
  Receipt Date: 20220217
  Transmission Date: 20220423
  Serious: Yes (Life-Threatening, Hospitalization)
  Sender: FDA-Public Use
  Company Number: ES-GW PHARMA-202109ESGW04610

PATIENT

DRUGS (8)
  1. EPIDIOLEX [Suspect]
     Active Substance: CANNABIDIOL
     Indication: Lennox-Gastaut syndrome
     Dosage: 11.7 MG/KG, 620 MILLIGRAM, QD
     Route: 048
     Dates: start: 20190128, end: 20190421
  2. EPIDIOLEX [Suspect]
     Active Substance: CANNABIDIOL
     Dosage: 29.4 MG/KG, 1538 MILLIGRAM, QD
     Route: 048
     Dates: start: 20190422, end: 20190630
  3. EPIDIOLEX [Suspect]
     Active Substance: CANNABIDIOL
     Dosage: 22 MG/KG, 1166 MILLIGRAM QD
     Route: 048
     Dates: start: 20190701
  4. CLOBAZAM [Concomitant]
     Active Substance: CLOBAZAM
     Indication: Seizure
     Dosage: UNK
     Route: 065
     Dates: start: 20190709
  5. VALPROATE [Concomitant]
     Active Substance: VALPROIC ACID
     Indication: Product used for unknown indication
     Dosage: DOES DECREASE DUE TO EVENT
     Route: 065
  6. PHENOBARBITAL [Concomitant]
     Active Substance: PHENOBARBITAL
     Indication: Product used for unknown indication
     Dosage: DOES DECREASE DUE TO EVENT
     Route: 065
     Dates: end: 2019
  7. TOPIRAMATE [Concomitant]
     Active Substance: TOPIRAMATE
     Indication: Product used for unknown indication
     Dosage: UNK
     Route: 065
     Dates: end: 2019
  8. CARNITINE [Concomitant]
     Active Substance: CARNITINE
     Indication: Product used for unknown indication
     Dosage: UNK
     Route: 065

REACTIONS (1)
  - Hyperammonaemia [Recovered/Resolved]

NARRATIVE: CASE EVENT DATE: 20190621
